FAERS Safety Report 7898676-X (Version None)
Quarter: 2011Q4

REPORT INFORMATION
  Report Type: 
  Country: None (occurrence: None)
  Receive Date: 20111103
  Receipt Date: 20111019
  Transmission Date: 20120403
  Serious: Yes (Hospitalization)
  Sender: FDA-Public Use
  Company Number: THQ2011A05663

PATIENT
  Age: 33 Year
  Sex: Female

DRUGS (7)
  1. RITUXIMAB [Suspect]
     Indication: HAEMATOLOGY TEST ABNORMAL
     Dosage: 375 MG/M2 (375 MG/M2, 2 IN 1 WK)
     Route: 041
     Dates: start: 20100917, end: 20100924
  2. NORETHINDRONE [Suspect]
     Dosage: 15 MG (5 MG, 3 IN 1 D)
     Route: 048
     Dates: start: 20100922, end: 20100928
  3. ROMIPLOSTIM (ROMIPLOSTIN) [Suspect]
     Indication: THROMBOCYTOPENIC PURPURA
     Dosage: (1 MG/KG)
     Route: 058
     Dates: start: 20100920, end: 20100920
  4. DEXAMETHASONE [Concomitant]
  5. TRANEXAMIC ACID [Suspect]
     Indication: PRODUCT USED FOR UNKNOWN INDICATION
     Dosage: 4 DF (1 DF, 4 IN 1 D)
     Route: 048
     Dates: start: 20100922, end: 20100928
  6. IMMUNE GLOBULIN NOS [Suspect]
     Indication: HAEMATOLOGY TEST ABNORMAL
     Dosage: 1000 MG/KG (1000 MG/KG, 1 IN 1 D)
     Route: 042
     Dates: start: 20100922, end: 20100923
  7. LANSOPRAZOLE [Suspect]
     Indication: GASTROOESOPHAGEAL REFLUX PROPHYLAXIS
     Dosage: 30 MG (30 MG, 1 IN 1 D) 15 MG
     Route: 048
     Dates: start: 20100907, end: 20100928

REACTIONS (7)
  - RASH MACULO-PAPULAR [None]
  - RASH ERYTHEMATOUS [None]
  - RECTAL HAEMORRHAGE [None]
  - VAGINAL HAEMORRHAGE [None]
  - MELAENA [None]
  - HAEMOGLOBIN DECREASED [None]
  - PURPURA [None]
